FAERS Safety Report 23400585 (Version 2)
Quarter: 2024Q1

REPORT INFORMATION
  Report Type: Spontaneous
  Country: JP (occurrence: JP)
  Receive Date: 20240115
  Receipt Date: 20240325
  Transmission Date: 20240410
  Serious: Yes (Other)
  Sender: FDA-Public Use
  Company Number: JP-TAKEDA-2024TJP000231

PATIENT
  Age: 58 Year
  Sex: Male

DRUGS (1)
  1. ALUNBRIG [Suspect]
     Active Substance: BRIGATINIB
     Indication: Lung adenocarcinoma
     Dosage: 180 MILLIGRAM, QD
     Route: 048
     Dates: start: 20230523

REACTIONS (3)
  - Lung adenocarcinoma [Unknown]
  - Pericarditis malignant [Unknown]
  - Cardiac tamponade [Unknown]
